FAERS Safety Report 5362098-6 (Version None)
Quarter: 2007Q2

REPORT INFORMATION
  Report Type: 
  Country: None (occurrence: None)
  Receive Date: 20070615
  Receipt Date: 20070615
  Transmission Date: 20071010
  Serious: Yes (Hospitalization, Other)
  Sender: FDA-Public Use
  Company Number: None

PATIENT
  Age: 26 Year
  Sex: Male
  Weight: 74.8435 kg

DRUGS (1)
  1. SUBOXONE [Suspect]
     Indication: DRUG DEPENDENCE
     Dosage: 8-12 MG 1-2X PER DAY SL
     Route: 060
     Dates: start: 20061116, end: 20070614

REACTIONS (7)
  - ABDOMINAL PAIN LOWER [None]
  - ABDOMINAL PAIN UPPER [None]
  - APPENDIX DISORDER [None]
  - BILIARY COLIC [None]
  - FLATULENCE [None]
  - NAUSEA [None]
  - WEIGHT DECREASED [None]
